FAERS Safety Report 18207053 (Version 1)
Quarter: 2020Q3

REPORT INFORMATION
  Report Type: Spontaneous
  Country: US (occurrence: US)
  Receive Date: 20200828
  Receipt Date: 20200828
  Transmission Date: 20201103
  Serious: No
  Sender: FDA-Public Use
  Company Number: US-3M-2020-US-006243

PATIENT
  Age: 32 Year
  Sex: Male
  Weight: 81.65 kg

DRUGS (1)
  1. CHLORHEXIDINE GLUCONATE (NON?SPECIFIC) [Suspect]
     Active Substance: CHLORHEXIDINE GLUCONATE
     Indication: GINGIVAL DISCOMFORT
     Dosage: 3?4 TIMES DAILY
     Route: 048
     Dates: start: 20200309, end: 20200319

REACTIONS (6)
  - Anosmia [Recovered/Resolved]
  - Ageusia [Recovered/Resolved]
  - Drug effective for unapproved indication [Recovered/Resolved]
  - Intentional product misuse [Recovered/Resolved]
  - Sinusitis [Recovered/Resolved]
  - Off label use [Recovered/Resolved]

NARRATIVE: CASE EVENT DATE: 20200309
